FAERS Safety Report 5113826-6 (Version None)
Quarter: 2006Q3

REPORT INFORMATION
  Report Type: 
  Country: None (occurrence: None)
  Receive Date: 20060920
  Receipt Date: 20060906
  Transmission Date: 20061208
  Serious: Yes (Hospitalization)
  Sender: FDA-Public Use
  Company Number: FR200609001398

PATIENT
  Age: 60 Year
  Sex: Male

DRUGS (1)
  1. GEMZAR [Suspect]
     Indication: MYCOSIS FUNGOIDES RECURRENT
     Dosage: INTRAVENOUS
     Route: 042
     Dates: start: 20060301, end: 20060801

REACTIONS (4)
  - ACUTE PULMONARY OEDEMA [None]
  - GENERALISED OEDEMA [None]
  - PLEURAL EFFUSION [None]
  - WEIGHT INCREASED [None]
